FAERS Safety Report 7149420-5 (Version None)
Quarter: 2010Q4

REPORT INFORMATION
  Report Type: 
  Country: None (occurrence: None)
  Receive Date: 20101209
  Receipt Date: 20100924
  Transmission Date: 20110411
  Serious: No
  Sender: FDA-Public Use
  Company Number: US-KINGPHARMUSA00001-K201001207

PATIENT
  Age: 51 Year
  Sex: Male
  Weight: 76.19 kg

DRUGS (3)
  1. EMBEDA [Suspect]
     Indication: PAIN
     Dosage: 20 MG, BID
     Route: 048
     Dates: start: 20100923
  2. VALIUM [Concomitant]
     Indication: MUSCLE SPASMS
     Dosage: 5 MG, BID
     Route: 048
  3. VALIUM [Concomitant]
     Indication: SLEEP DISORDER

REACTIONS (1)
  - DRUG INEFFECTIVE [None]
